FAERS Safety Report 5062659-8 (Version None)
Quarter: 2006Q3

REPORT INFORMATION
  Report Type: 
  Country: None (occurrence: None)
  Receive Date: 20060724
  Receipt Date: 20060724
  Transmission Date: 20061208
  Serious: Yes (Life-Threatening, Hospitalization)
  Sender: FDA-Public Use
  Company Number: None

PATIENT
  Sex: Male

DRUGS (1)
  1. PIPERACILLIN [Suspect]
     Indication: DIABETIC FOOT INFECTION
     Dosage: 2.25 GRAM Q 12H IV
     Route: 042
     Dates: start: 20060615, end: 20060615

REACTIONS (1)
  - BRONCHOSPASM [None]
